FAERS Safety Report 16786154 (Version 1)
Quarter: 2019Q3

REPORT INFORMATION
  Report Type: Spontaneous
  Country: US (occurrence: US)
  Receive Date: 20190909
  Receipt Date: 20190909
  Transmission Date: 20191005
  Serious: Yes (Other)
  Sender: FDA-Public Use
  Company Number: US-AMNEAL PHARMACEUTICALS-2019-IPXL-01741

PATIENT
  Age: 72 Year
  Sex: Female
  Weight: 48 kg

DRUGS (10)
  1. GOCOVRI [Suspect]
     Active Substance: AMANTADINE
     Dosage: 1 DOSAGE FORM, DAILY
     Route: 065
  2. GOCOVRI [Suspect]
     Active Substance: AMANTADINE
     Dosage: 137 MILLIGRAM, 1 /DAY (AT BEDTIME)
     Route: 048
     Dates: start: 201907, end: 20190805
  3. SINEMET [Concomitant]
     Active Substance: CARBIDOPA\LEVODOPA
     Indication: PRODUCT USED FOR UNKNOWN INDICATION
     Dosage: UNK, BEDTIME
     Route: 065
  4. RYTARY [Suspect]
     Active Substance: CARBIDOPA\LEVODOPA
     Dosage: 2 DOSAGE FORM, 2 /DAY
     Route: 065
     Dates: start: 20190806
  5. GOCOVRI [Suspect]
     Active Substance: AMANTADINE
     Indication: DYSKINESIA
     Dosage: 137 MILLIGRAM, 1 /DAY
     Route: 065
     Dates: start: 20190711, end: 20190717
  6. GOCOVRI [Suspect]
     Active Substance: AMANTADINE
     Dosage: 274 MILLIGRAM, 1 /DAY (AT BEDTIME)
     Route: 048
     Dates: start: 20190718, end: 201907
  7. RYTARY [Suspect]
     Active Substance: CARBIDOPA\LEVODOPA
     Dosage: 7 DOSAGE FORM, 1 /DAY, DECREASED DOSE
     Route: 065
  8. GOCOVRI [Suspect]
     Active Substance: AMANTADINE
     Dosage: 274 MILLIGRAM, 1 /DAY (AT BEDTIME)
     Route: 048
     Dates: start: 20190806
  9. RYTARY [Suspect]
     Active Substance: CARBIDOPA\LEVODOPA
     Indication: PARKINSON^S DISEASE
     Dosage: 3 DOSAGE FORM, 3 /DAY
     Route: 065
     Dates: start: 2017, end: 20190805
  10. RYTARY [Suspect]
     Active Substance: CARBIDOPA\LEVODOPA
     Dosage: 3 DOSAGE FORM, 1 /DAY (IN THE MORNING)
     Route: 065
     Dates: start: 20190806

REACTIONS (9)
  - Fatigue [Recovering/Resolving]
  - Balance disorder [Recovering/Resolving]
  - Hallucination, visual [Unknown]
  - Blood pressure decreased [Recovered/Resolved]
  - Upper limb fracture [Unknown]
  - Somnolence [Recovering/Resolving]
  - Fall [Unknown]
  - Skin exfoliation [Recovered/Resolved]
  - Dyskinesia [Unknown]

NARRATIVE: CASE EVENT DATE: 201905
